FAERS Safety Report 8494693-X (Version None)
Quarter: 2012Q3

REPORT INFORMATION
  Report Type: 
  Country: None (occurrence: None)
  Receive Date: 20120709
  Receipt Date: 20120628
  Transmission Date: 20120928
  Serious: Yes (Other)
  Sender: FDA-Public Use
  Company Number: US-JNJFOC-20120700400

PATIENT
  Sex: Female

DRUGS (1)
  1. REMICADE [Suspect]
     Indication: ANKYLOSING SPONDYLITIS
     Route: 042
     Dates: end: 20120501

REACTIONS (5)
  - INFUSION RELATED REACTION [None]
  - SWELLING [None]
  - DRUG HYPERSENSITIVITY [None]
  - DYSKINESIA [None]
  - FEELING HOT [None]
